FAERS Safety Report 16084645 (Version 1)
Quarter: 2019Q1

REPORT INFORMATION
  Report Type: Spontaneous
  Country: US (occurrence: US)
  Receive Date: 20190318
  Receipt Date: 20190318
  Transmission Date: 20190418
  Serious: No
  Sender: FDA-Public Use
  Company Number: US-TEVA-2019-US-1016906

PATIENT
  Sex: Male
  Weight: 97.52 kg

DRUGS (6)
  1. SILDENAFIL TEVA [Suspect]
     Active Substance: SILDENAFIL
     Indication: ERECTILE DYSFUNCTION
     Dosage: 1 HOUR BEFORE NEEDED, ONCE A WEEK
     Route: 048
     Dates: start: 201804
  2. OXYMORPHONE ER [Concomitant]
     Active Substance: OXYMORPHONE
     Indication: PAIN
     Dosage: 30 MILLIGRAM DAILY;
     Route: 048
     Dates: start: 2013
  3. OXYCODONE [Concomitant]
     Active Substance: OXYCODONE
     Indication: PAIN
     Dosage: 75 MILLIGRAM DAILY; 15MG, TABLET, BY MOUTH EVERY 4-5 HOURS, 5 TABLETS IN A 24 HOUR PERIOD
     Route: 048
     Dates: start: 2013
  4. SOMA [Concomitant]
     Active Substance: CARISOPRODOL
     Indication: HYPOTONIA
  5. TYLENOL [Concomitant]
     Active Substance: ACETAMINOPHEN
     Indication: PAIN
     Dosage: 1000 MG TABLET, 3 TIMES A DAY, AS NEEDED, SOMETIMES TAKES 500MG DOSE.
  6. SOMA [Concomitant]
     Active Substance: CARISOPRODOL
     Indication: PAIN
     Dosage: 1000 MILLIGRAM DAILY;
     Route: 048
     Dates: start: 2000

REACTIONS (5)
  - Flushing [Recovered/Resolved]
  - Weight decreased [Unknown]
  - Headache [Recovered/Resolved]
  - Heart rate increased [Unknown]
  - Blood pressure increased [Recovered/Resolved]
